FAERS Safety Report 15243776 (Version 1)
Quarter: 2018Q3

REPORT INFORMATION
  Report Type: Spontaneous
  Country: US (occurrence: US)
  Receive Date: 20180806
  Receipt Date: 20180806
  Transmission Date: 20181010
  Serious: No
  Sender: FDA-Public Use
  Company Number: US-009507513-1807USA012105

PATIENT
  Age: 40 Year
  Sex: Female

DRUGS (1)
  1. NEXPLANON [Suspect]
     Active Substance: ETONOGESTREL
     Indication: CONTRACEPTION
     Dosage: ONE IMPLANT, EVERY 3 YEARS, IN THE LEFT ARM
     Route: 059
     Dates: start: 20160608

REACTIONS (6)
  - Abdominal pain upper [Unknown]
  - Muscle spasms [Unknown]
  - Amenorrhoea [Recovered/Resolved]
  - Toothache [Unknown]
  - Menorrhagia [Not Recovered/Not Resolved]
  - Headache [Unknown]

NARRATIVE: CASE EVENT DATE: 201606
